FAERS Safety Report 6122204-2 (Version None)
Quarter: 2009Q1

REPORT INFORMATION
  Report Type: 
  Country: None (occurrence: None)
  Receive Date: 20090318
  Receipt Date: 20090306
  Transmission Date: 20090719
  Serious: Yes (Hospitalization)
  Sender: FDA-Public Use
  Company Number: FR-JNJFOC-20090203024

PATIENT
  Age: 49 Year
  Sex: Female
  Weight: 100 kg

DRUGS (8)
  1. REMICADE [Suspect]
     Dosage: DURATION: GREATER THAN 1 YEAR
     Route: 042
  2. REMICADE [Suspect]
     Dosage: INFUSION 6 THROUGH 9 ADMINISTERED ON UNSPECIFIED DATES
     Route: 042
  3. REMICADE [Suspect]
     Dosage: DURATION: GREATER THAN 1 YEAR
     Route: 042
  4. REMICADE [Suspect]
     Dosage: DURATION: GREATER THAN 1 YEAR
     Route: 042
  5. REMICADE [Suspect]
     Dosage: DURATION: GREATER THAN 1 YEAR
     Route: 042
  6. REMICADE [Suspect]
     Indication: CROHN'S DISEASE
     Dosage: DURATION: GREATER THAN 1 YEAR; DOSE ALSO REPORTED AS 5 MG/KG
     Route: 042
  7. IMUREL [Concomitant]
     Indication: CROHN'S DISEASE
  8. CORTICOTHERAPY [Concomitant]
     Indication: CROHN'S DISEASE
     Route: 048

REACTIONS (1)
  - PULMONARY TUBERCULOSIS [None]
